FAERS Safety Report 23716224 (Version 4)
Quarter: 2024Q2

REPORT INFORMATION
  Report Type: Spontaneous
  Country: FR (occurrence: FR)
  Receive Date: 20240408
  Receipt Date: 20240522
  Transmission Date: 20240716
  Serious: Yes (Other)
  Sender: FDA-Public Use
  Company Number: FR-EIGER BIOPHARMACEUTICALS-EIG-2024-000007

PATIENT
  Age: 21 Year
  Sex: Male
  Weight: 21 kg

DRUGS (7)
  1. LONAFARNIB [Suspect]
     Active Substance: LONAFARNIB
     Indication: Progeria
     Dosage: 50 MG IN THE MORNING AND IN THE EVENING
     Route: 048
  2. MIDAZOLAM [Interacting]
     Active Substance: MIDAZOLAM
     Indication: Surgery
  3. MIDAZOLAM [Interacting]
     Active Substance: MIDAZOLAM
     Indication: Anaesthesia
  4. ASPIRIN [Concomitant]
     Active Substance: ASPIRIN
     Indication: Myocardial ischaemia
     Dosage: 75 MILLIGRAM, QD
  5. FUROSEMIDE [Concomitant]
     Active Substance: FUROSEMIDE
     Indication: Myocardial ischaemia
     Dosage: 20 MG
  6. PRAVASTATIN [Concomitant]
     Active Substance: PRAVASTATIN
     Indication: Myocardial ischaemia
     Dosage: 20 MILLIGRAM
  7. PRAVASTATIN [Concomitant]
     Active Substance: PRAVASTATIN
     Indication: Dyslipidaemia

REACTIONS (6)
  - Contraindicated product administered [Unknown]
  - Confusional state [Recovered/Resolved]
  - Labelled drug-drug interaction medication error [Unknown]
  - Product dose omission issue [Unknown]
  - Product supply issue [Unknown]
  - Drug interaction [Unknown]

NARRATIVE: CASE EVENT DATE: 20240313
